FAERS Safety Report 6955506-8 (Version None)
Quarter: 2010Q3

REPORT INFORMATION
  Report Type: 
  Country: None (occurrence: None)
  Receive Date: 20100830
  Receipt Date: 20100824
  Transmission Date: 20110219
  Serious: Yes (Hospitalization)
  Sender: FDA-Public Use
  Company Number: JP-BRISTOL-MYERS SQUIBB COMPANY-15245186

PATIENT
  Age: 31 Year
  Weight: 46 kg

DRUGS (17)
  1. CISPLATIN [Suspect]
     Indication: CERVIX CARCINOMA RECURRENT
     Route: 042
     Dates: start: 20100721
  2. S-1 [Suspect]
     Indication: CERVIX CARCINOMA RECURRENT
     Dosage: CYCLE-1; TOTAL DAILY DOSE- 100MG
     Route: 048
     Dates: start: 20100721, end: 20100801
  3. TRAVELMIN [Concomitant]
     Indication: PROPHYLAXIS OF NAUSEA AND VOMITING
     Route: 048
     Dates: start: 20100809
  4. OXYCONTIN [Concomitant]
     Indication: CANCER PAIN
     Route: 048
     Dates: start: 20100802
  5. NOVAMIN [Concomitant]
     Indication: PROPHYLAXIS
     Route: 048
     Dates: start: 20100802
  6. LOXONIN [Concomitant]
     Indication: PYREXIA
     Route: 048
     Dates: start: 20100803
  7. SELBEX [Concomitant]
     Indication: GASTRITIS PROPHYLAXIS
     Route: 048
     Dates: start: 20100803
  8. BIOFERMIN [Concomitant]
     Indication: GASTROENTERITIS RADIATION
     Route: 048
  9. MAGMITT [Concomitant]
     Indication: GASTROENTERITIS RADIATION
     Route: 048
  10. BUSCOPAN [Concomitant]
     Indication: GASTROENTERITIS RADIATION
     Dosage: 1 DF= 10-30MG
     Route: 048
  11. FERROMIA [Concomitant]
     Indication: ANAEMIA
     Route: 048
  12. PRIMPERAN TAB [Concomitant]
     Indication: NAUSEA
     Dosage: 1 DF= 5-15MG
     Route: 048
     Dates: start: 20100723
  13. NERISONE [Concomitant]
     Indication: DERMATITIS ATOPIC
  14. LIDOMEX [Concomitant]
     Indication: DERMATITIS ATOPIC
  15. SOLDEM 3A [Concomitant]
     Indication: DECREASED APPETITE
     Route: 042
     Dates: start: 20100816, end: 20100816
  16. GLYCERIN [Concomitant]
     Indication: ABDOMINAL DISTENSION
     Route: 042
     Dates: start: 20100816, end: 20100816
  17. ESTRADIOL [Concomitant]

REACTIONS (1)
  - ILEUS [None]
